FAERS Safety Report 9407914 (Version 2)
Quarter: 2013Q3

REPORT INFORMATION
  Report Type: Spontaneous
  Country: US (occurrence: US)
  Receive Date: 20130718
  Receipt Date: 20130806
  Transmission Date: 20140515
  Serious: Yes (Other)
  Sender: FDA-Public Use
  Company Number: US-PFIZER INC-2013211362

PATIENT
  Age: 61 Year
  Sex: Female
  Weight: 65.76 kg

DRUGS (2)
  1. CHANTIX [Suspect]
     Indication: SMOKING CESSATION THERAPY
     Dosage: UNK
     Route: 048
     Dates: start: 20130523, end: 2013
  2. ADVIL [Concomitant]
     Dosage: UNK

REACTIONS (4)
  - Pneumoconiosis [Unknown]
  - Weight increased [Unknown]
  - Weight decreased [Unknown]
  - Body height decreased [Unknown]
